FAERS Safety Report 15219687 (Version 1)
Quarter: 2018Q3

REPORT INFORMATION
  Report Type: Report from Study
  Country: None (occurrence: CA)
  Receive Date: 20180731
  Receipt Date: 20180731
  Transmission Date: 20181010
  Serious: Yes (Other)
  Sender: FDA-Public Use
  Company Number: CA-ABBVIE-18K-028-2230279-00

PATIENT
  Age: 67 Year
  Sex: Female

DRUGS (1)
  1. HUMIRA [Suspect]
     Active Substance: ADALIMUMAB
     Indication: CROHN^S DISEASE
     Route: 058
     Dates: start: 20160523

REACTIONS (6)
  - Abdominal distension [Unknown]
  - Psoriasis [Not Recovered/Not Resolved]
  - Large intestinal stenosis [Not Recovered/Not Resolved]
  - Intestinal scarring [Not Recovered/Not Resolved]
  - Intentional product misuse [Unknown]
  - Fistula [Unknown]

NARRATIVE: CASE EVENT DATE: 201709
